FAERS Safety Report 16761885 (Version 9)
Quarter: 2020Q4

REPORT INFORMATION
  Report Type: Report from Study
  Country: US (occurrence: US)
  Receive Date: 20190830
  Receipt Date: 20201209
  Transmission Date: 20210113
  Serious: Yes (Hospitalization, Disabling, Other)
  Sender: FDA-Public Use
  Company Number: US-GILEAD-2019-0425989

PATIENT
  Age: 36 Year
  Sex: Female

DRUGS (3)
  1. LEDIPASVIR/SOFOSBUVIR [Suspect]
     Active Substance: LEDIPASVIR\SOFOSBUVIR
     Dosage: UNK
     Route: 065
     Dates: start: 201609
  2. LEDIPASVIR/SOFOSBUVIR [Suspect]
     Active Substance: LEDIPASVIR\SOFOSBUVIR
     Dosage: 1 DOSAGE FORM, QD
     Route: 048
     Dates: start: 201505, end: 2015
  3. LEDIPASVIR/SOFOSBUVIR [Suspect]
     Active Substance: LEDIPASVIR\SOFOSBUVIR
     Indication: CHRONIC HEPATITIS C
     Dosage: 2 DOSAGE FORM, QD
     Route: 065

REACTIONS (37)
  - Pneumothorax spontaneous [Recovered/Resolved with Sequelae]
  - Post-traumatic stress disorder [Unknown]
  - Pain in extremity [Not Recovered/Not Resolved]
  - Memory impairment [Unknown]
  - Emotional distress [Unknown]
  - Poisoning [Unknown]
  - Circumstance or information capable of leading to medication error [Recovered/Resolved]
  - Prescribed overdose [Recovered/Resolved]
  - Cerebrovascular accident [Unknown]
  - Arthropathy [Unknown]
  - Overdose [Unknown]
  - Quality of life decreased [Unknown]
  - Drug intolerance [Unknown]
  - Splenomegaly [Unknown]
  - Thrombocytopenia [Unknown]
  - Immune system disorder [Recovered/Resolved with Sequelae]
  - Blood bilirubin increased [Unknown]
  - Pain [Unknown]
  - Coma [Recovered/Resolved with Sequelae]
  - Staphylococcal infection [Unknown]
  - Respiratory failure [Unknown]
  - Coma [Recovered/Resolved with Sequelae]
  - Respiratory arrest [Recovered/Resolved with Sequelae]
  - Pneumonia [Unknown]
  - Candida infection [Unknown]
  - Organ failure [Unknown]
  - Brain death [Unknown]
  - Craniocerebral injury [Not Recovered/Not Resolved]
  - Disability [Not Recovered/Not Resolved]
  - Immune system disorder [Unknown]
  - Gait inability [Unknown]
  - Feeling abnormal [Recovered/Resolved]
  - Product distribution issue [Recovered/Resolved]
  - Autoimmune anaemia [Unknown]
  - Hypersensitivity [Unknown]
  - Product use issue [Unknown]
  - Product prescribing error [Recovered/Resolved]

NARRATIVE: CASE EVENT DATE: 2015
